FAERS Safety Report 9209424 (Version 1)
Quarter: 2013Q2

REPORT INFORMATION
  Report Type: Spontaneous
  Country: US (occurrence: None)
  Receive Date: 20130403
  Receipt Date: 20130403
  Transmission Date: 20140414
  Serious: Yes (Other)
  Sender: FDA-Public Use
  Company Number: None

PATIENT
  Age: 61 Year
  Sex: Female
  Weight: 58.06 kg

DRUGS (2)
  1. SONATA [Suspect]
     Indication: SLEEP DISORDER
     Dosage: 10 MG AT HS
     Dates: start: 20130319
  2. BENADRYL [Concomitant]

REACTIONS (5)
  - Dizziness [None]
  - Rash [None]
  - Pruritus [None]
  - Swelling face [None]
  - Swollen tongue [None]
